FAERS Safety Report 7301644-X (Version None)
Quarter: 2011Q1

REPORT INFORMATION
  Report Type: 
  Country: None (occurrence: None)
  Receive Date: 20110218
  Receipt Date: 20110210
  Transmission Date: 20110831
  Serious: Yes (Other)
  Sender: FDA-Public Use
  Company Number: BR-SANOFI-AVENTIS-2011SA002622

PATIENT
  Sex: Male
  Weight: 57 kg

DRUGS (3)
  1. LANTUS [Suspect]
     Indication: TYPE 2 DIABETES MELLITUS
     Route: 058
  2. LANTUS [Suspect]
     Route: 058
  3. SOLOSTAR [Suspect]

REACTIONS (8)
  - UNEVALUABLE EVENT [None]
  - VISUAL IMPAIRMENT [None]
  - OEDEMA PERIPHERAL [None]
  - TREMOR [None]
  - CATARACT [None]
  - CHOLANGITIS SCLEROSING [None]
  - SYNCOPE [None]
  - OCULAR DISCOMFORT [None]
